FAERS Safety Report 8135696-4 (Version None)
Quarter: 2012Q1

REPORT INFORMATION
  Report Type: 
  Country: None (occurrence: None)
  Receive Date: 20120214
  Receipt Date: 20120202
  Transmission Date: 20120608
  Serious: Yes (Other)
  Sender: FDA-Public Use
  Company Number: US-UCBSA-050246

PATIENT
  Age: 38 Year
  Sex: Female

DRUGS (5)
  1. HUMIRA [Suspect]
     Indication: CROHN'S DISEASE
     Dosage: 40MG/0.8ML
     Dates: start: 20090201, end: 20110926
  2. HUMIRA [Suspect]
     Indication: RHEUMATOID ARTHRITIS
     Dosage: 40MG/0.8ML
     Dates: start: 20090201, end: 20110926
  3. QUETIAPINE FUMARATE [Concomitant]
     Indication: SLEEP DISORDER
     Dosage: 100MG-200MG EVERY NIGHT
  4. CIMZIA [Suspect]
     Indication: RHEUMATOID ARTHRITIS
     Dosage: UNKNOWN
     Route: 058
     Dates: start: 20111010, end: 20111010
  5. CLONAZEPAM [Concomitant]
     Indication: SLEEP DISORDER
     Dosage: 2-4 MG EVERY NIGHT

REACTIONS (3)
  - DEMYELINATION [None]
  - EPILEPSY [None]
  - GRAND MAL CONVULSION [None]
